FAERS Safety Report 7224623-X (Version None)
Quarter: 2011Q1

REPORT INFORMATION
  Report Type: 
  Country: None (occurrence: None)
  Receive Date: 20110113
  Receipt Date: 20110107
  Transmission Date: 20110831
  Serious: Yes (Death)
  Sender: FDA-Public Use
  Company Number: JP-PFIZER INC-2011004270

PATIENT
  Age: 77 Year
  Sex: Female

DRUGS (15)
  1. MUCOSTA [Concomitant]
     Dosage: 3 DF, 3X/DAY
     Route: 048
  2. ALLOPURINOL [Concomitant]
     Dosage: 100 MG, 1X/DAY
     Route: 048
  3. BASEN [Concomitant]
     Dosage: 0.2 MG, 3X/DAY
     Route: 048
  4. ACINON [Concomitant]
     Dosage: 2 DF, 2X/DAY
     Route: 048
  5. LYRICA [Suspect]
     Dosage: 150 MG, 1X/DAY
     Route: 048
     Dates: start: 20101222
  6. COUGHCODE N [Concomitant]
     Dosage: UNK
     Route: 048
  7. POLAPREZINC [Concomitant]
     Dosage: 75 MG, 1X/DAY
     Route: 048
  8. PEON [Concomitant]
     Dosage: 3 DF, 3X/DAY
     Route: 048
  9. VESICARE [Concomitant]
     Dosage: 5 MG, 1X/DAY
     Route: 048
  10. LOXONIN [Concomitant]
     Indication: PAIN
     Dosage: 60 MG, AS NEEDED
  11. ALFAROL [Concomitant]
     Dosage: 1 UG, 1X/DAY
     Route: 048
  12. EPADEL [Concomitant]
     Dosage: 300 MG, 1X/DAY
     Route: 048
  13. VALSARTAN [Concomitant]
     Dosage: 80 MG, 1X/DAY
     Route: 048
  14. TERNELIN [Concomitant]
     Dosage: 3 DF, 3X/DAY
     Route: 048
  15. LENDORMIN [Concomitant]
     Dosage: 0.25 MG, 1X/DAY BEFORE BED
     Route: 048

REACTIONS (1)
  - DEATH [None]
